FAERS Safety Report 7224118-3 (Version None)
Quarter: 2011Q1

REPORT INFORMATION
  Report Type: 
  Country: None (occurrence: None)
  Receive Date: 20110106
  Receipt Date: 20110106
  Transmission Date: 20110831
  Serious: Yes (Hospitalization)
  Sender: FDA-Public Use
  Company Number: None

PATIENT
  Age: 62 Year
  Sex: Male
  Weight: 74 kg

DRUGS (2)
  1. LISINOPRIL [Suspect]
     Indication: HYPERALDOSTERONISM
     Dosage: SOMETIME IN PAST YEAR ; ABOUT 1 WEEK
  2. LISINOPRIL [Suspect]
     Indication: HYPERTENSION
     Dosage: SOMETIME IN PAST YEAR ; ABOUT 1 WEEK

REACTIONS (2)
  - HYPERKALAEMIA [None]
  - RENAL FAILURE [None]
